FAERS Safety Report 13544332 (Version 1)
Quarter: 2017Q2

REPORT INFORMATION
  Report Type: Spontaneous
  Country: US (occurrence: US)
  Receive Date: 20170515
  Receipt Date: 20170515
  Transmission Date: 20170830
  Serious: No
  Sender: FDA-Public Use
  Company Number: US-B.I. PHARMACEUTICALS,INC./RIDGEFIELD-2017-BI-026066

PATIENT
  Age: 79 Year
  Sex: Male

DRUGS (2)
  1. PRADAXA [Suspect]
     Active Substance: DABIGATRAN ETEXILATE MESYLATE
     Dosage: BID;  FORM STRENGTH: 150MG; FORMULATION: CAPSULE ADMINISTRATION CORRECT? YES ACTION(S) TAKEN WITH PR
     Route: 048
     Dates: start: 2016
  2. PRADAXA [Suspect]
     Active Substance: DABIGATRAN ETEXILATE MESYLATE
     Indication: ATRIAL FIBRILLATION
     Dosage: BID;  FORM STRENGTH: 75 MG; FORMULATION: CAPSULE ADMINISTRATION CORRECT? YES ACTION(S) TAKEN WITH PR
     Route: 048
     Dates: start: 2013, end: 2016

REACTIONS (4)
  - Limb injury [Recovered/Resolved]
  - Face injury [Recovered/Resolved]
  - Limb discomfort [Not Recovered/Not Resolved]
  - Limb discomfort [Unknown]

NARRATIVE: CASE EVENT DATE: 2016
